FAERS Safety Report 11756574 (Version 2)
Quarter: 2015Q4

REPORT INFORMATION
  Report Type: Spontaneous
  Country: AU (occurrence: AT)
  Receive Date: 20151119
  Receipt Date: 20151125
  Transmission Date: 20160304
  Serious: Yes (Hospitalization, Other)
  Sender: FDA-Public Use
  Company Number: GB-IGI LABORATORIES, INC.-1044454

PATIENT
  Age: 42 Year
  Sex: Male
  Weight: 87 kg

DRUGS (6)
  1. ORUDIS [Suspect]
     Active Substance: KETOPROFEN
     Route: 065
  2. ENFLURANE. [Suspect]
     Active Substance: ENFLURANE
     Route: 065
  3. ZANTAC [Suspect]
     Active Substance: RANITIDINE HYDROCHLORIDE
     Indication: PRODUCT USED FOR UNKNOWN INDICATION
     Route: 065
  4. VECURONIUM BROMIDE. [Suspect]
     Active Substance: VECURONIUM BROMIDE
     Route: 065
  5. PANADEINE CO [Suspect]
     Active Substance: ACETAMINOPHEN\CODEINE PHOSPHATE
     Route: 065
  6. VALIUM [Suspect]
     Active Substance: DIAZEPAM
     Route: 065

REACTIONS (1)
  - Haemolysis [Recovering/Resolving]

NARRATIVE: CASE EVENT DATE: 19901201
